FAERS Safety Report 19506989 (Version 1)
Quarter: 2021Q3

REPORT INFORMATION
  Report Type: Spontaneous
  Country: US (occurrence: US)
  Receive Date: 20210708
  Receipt Date: 20210708
  Transmission Date: 20211014
  Serious: Yes (Life-Threatening, Disabling, Other)
  Sender: FDA-Public Use
  Company Number: None

PATIENT
  Age: 75 Year
  Sex: Male
  Weight: 94.5 kg

DRUGS (1)
  1. METOPROLOL SUCCINATE ER, NDC: 50742?0615?10 [Suspect]
     Active Substance: METOPROLOL SUCCINATE
     Indication: ATRIAL FIBRILLATION
     Dosage: ?          QUANTITY:0.5 TABLET(S);?
     Route: 048
     Dates: start: 20210501, end: 20210623

REACTIONS (7)
  - Balance disorder [None]
  - Heart rate increased [None]
  - Nystagmus [None]
  - Vertigo [None]
  - Dizziness [None]
  - Chest pain [None]
  - Tachycardia [None]

NARRATIVE: CASE EVENT DATE: 20210515
